FAERS Safety Report 6742768-5 (Version None)
Quarter: 2010Q2

REPORT INFORMATION
  Report Type: 
  Country: None (occurrence: None)
  Receive Date: 20100525
  Receipt Date: 20100518
  Transmission Date: 20101027
  Serious: Yes (Death)
  Sender: FDA-Public Use
  Company Number: TPA2010A02923

PATIENT
  Sex: Male

DRUGS (1)
  1. KAPIDEX (DEXLANSOPRAZOLE) [Suspect]

REACTIONS (1)
  - DEATH [None]
